FAERS Safety Report 17957434 (Version 1)
Quarter: 2020Q2

REPORT INFORMATION
  Report Type: Spontaneous
  Country: CN (occurrence: CN)
  Receive Date: 20200629
  Receipt Date: 20200629
  Transmission Date: 20200714
  Serious: Yes (Disabling)
  Sender: FDA-Public Use
  Company Number: CN-PFIZER INC-2020246862

PATIENT
  Age: 71 Year
  Sex: Male
  Weight: 58.3 kg

DRUGS (10)
  1. LIPITOR [Suspect]
     Active Substance: ATORVASTATIN CALCIUM
     Indication: HYPERLIPIDAEMIA
  2. CLOPIDOGREL BISULFATE. [Suspect]
     Active Substance: CLOPIDOGREL BISULFATE
     Indication: CEREBRAL INFARCTION
     Dosage: 75.000 MG, 1X/DAY
     Route: 048
     Dates: start: 20200608, end: 20200620
  3. ASPIRIN [ACETYLSALICYLIC ACID] [Concomitant]
     Active Substance: ASPIRIN
     Indication: CEREBRAL INFARCTION
     Dosage: 0.100 G, 1X/DAY
     Route: 048
     Dates: start: 20200608, end: 20200620
  4. BUTYLPHTHALIDE/SODIUM CHLORIDE [Suspect]
     Active Substance: BUTYLPHTHALIDE
     Indication: NUTRITIONAL SUPPLEMENTATION
  5. ASPIRIN [ACETYLSALICYLIC ACID] [Concomitant]
     Active Substance: ASPIRIN
     Indication: ANTIPLATELET THERAPY
  6. BUTYLPHTHALIDE/SODIUM CHLORIDE [Suspect]
     Active Substance: BUTYLPHTHALIDE
     Indication: CEREBRAL INFARCTION
     Dosage: 100.000 ML, 2X/DAY
     Route: 041
     Dates: start: 20200609, end: 20200620
  7. BUTYLPHTHALIDE/SODIUM CHLORIDE [Suspect]
     Active Substance: BUTYLPHTHALIDE
     Indication: INTRACRANIAL PRESSURE INCREASED
  8. LIPITOR [Suspect]
     Active Substance: ATORVASTATIN CALCIUM
     Indication: CEREBRAL INFARCTION
     Dosage: 40.000 MG, 1X/DAY
     Route: 048
     Dates: start: 20200608, end: 20200620
  9. CLOPIDOGREL BISULFATE. [Suspect]
     Active Substance: CLOPIDOGREL BISULFATE
     Indication: ANTIPLATELET THERAPY
  10. BUTYLPHTHALIDE/SODIUM CHLORIDE [Suspect]
     Active Substance: BUTYLPHTHALIDE
     Indication: SUPPLEMENTATION THERAPY

REACTIONS (6)
  - Hepatic function abnormal [Unknown]
  - Aspartate aminotransferase increased [Unknown]
  - Gamma-glutamyltransferase increased [Unknown]
  - Blood albumin decreased [Unknown]
  - Alanine aminotransferase increased [Unknown]
  - Protein total decreased [Unknown]

NARRATIVE: CASE EVENT DATE: 20200611
